FAERS Safety Report 6377753-9 (Version None)
Quarter: 2009Q3

REPORT INFORMATION
  Report Type: 
  Country: None (occurrence: None)
  Receive Date: 20090925
  Receipt Date: 20090923
  Transmission Date: 20100115
  Serious: No
  Sender: FDA-Public Use
  Company Number: US-ROXANE LABORATORIES, INC.-2009-RO-00995RO

PATIENT
  Sex: Male

DRUGS (6)
  1. MERCAPTOPURINE [Suspect]
     Indication: COLITIS
     Dosage: 50 MG
     Dates: start: 20090115
  2. HYDROCHLOROTHIAZIDE [Concomitant]
  3. AMILORIDE HYDROCHLORIDE [Concomitant]
  4. POTASSIUM CHLORIDE [Concomitant]
  5. COLAZAL [Concomitant]
  6. PREDNISONE TAB [Concomitant]

REACTIONS (1)
  - HAEMOGLOBIN DECREASED [None]
